FAERS Safety Report 7174742-1 (Version None)
Quarter: 2010Q4

REPORT INFORMATION
  Report Type: 
  Country: None (occurrence: None)
  Receive Date: 20101219
  Receipt Date: 20100408
  Transmission Date: 20110411
  Serious: No
  Sender: FDA-Public Use
  Company Number: US-AMGEN-QUU398219

PATIENT

DRUGS (2)
  1. ENBREL [Suspect]
     Indication: PSORIASIS
     Dosage: 50 MG, QWK
     Route: 058
     Dates: start: 20080601, end: 20090301
  2. UNSPECIFIED TOPICAL PRODUCT [Concomitant]
     Dosage: UNK UNK, UNK
     Dates: start: 20100305

REACTIONS (1)
  - AMENORRHOEA [None]
